FAERS Safety Report 4456209-4 (Version None)
Quarter: 2004Q3

REPORT INFORMATION
  Report Type: 
  Country: None (occurrence: None)
  Receive Date: 20040920
  Receipt Date: 20040909
  Transmission Date: 20050211
  Serious: Yes (Hospitalization)
  Sender: FDA-Public Use
  Company Number: 2004233220GB

PATIENT
  Age: 81 Year
  Sex: Female

DRUGS (6)
  1. CELEBREX [Suspect]
     Indication: PAIN
     Dosage: 200 MG, QD, ORAL
     Route: 048
     Dates: start: 20040301, end: 20040806
  2. DELTA-CORTEF [Suspect]
     Indication: CHRONIC OBSTRUCTIVE AIRWAYS DISEASE
     Dosage: 5 MG, BID, ORAL
     Route: 048
     Dates: end: 20040809
  3. ATROVENT [Concomitant]
  4. ALBUTEROL [Concomitant]
  5. BECLOMETHASONE DIPROPIONATE [Concomitant]
  6. FRUSEMIDE [Concomitant]

REACTIONS (2)
  - DUODENAL ULCER HAEMORRHAGE [None]
  - HAEMOGLOBIN DECREASED [None]
